FAERS Safety Report 21248208 (Version 1)
Quarter: 2022Q3

REPORT INFORMATION
  Report Type: Spontaneous
  Country: US (occurrence: None)
  Receive Date: 20220823
  Receipt Date: 20220823
  Transmission Date: 20221027
  Serious: Yes (Death)
  Sender: FDA-Public Use
  Company Number: None

PATIENT
  Sex: Female
  Weight: 54.9 kg

DRUGS (12)
  1. POMALYST [Suspect]
     Active Substance: POMALIDOMIDE
     Indication: Plasma cell myeloma
     Dosage: OTHER FREQUENCY : 21 ON/7 OFF;?
     Route: 048
     Dates: start: 20180906
  2. ACYCLOVIR [Concomitant]
     Active Substance: ACYCLOVIR
  3. AMIODARONE [Concomitant]
     Active Substance: AMIODARONE
  4. apixaban 5 mg tablet [Concomitant]
  5. ascorbic acid-ascorbate sodium (vitamin C) 500 mg chewable table [Concomitant]
  6. aspirin 81 mg capsule [Concomitant]
  7. DEXAMETHASONE [Concomitant]
     Active Substance: DEXAMETHASONE
  8. fluticasone propionate 50 mcg/actuation nasal spray,suspension [Concomitant]
  9. METOPROLOL TARTRATE [Concomitant]
     Active Substance: METOPROLOL TARTRATE
  10. potassium chloride ER 10 mEq tablet,extended release [Concomitant]
  11. rosuvastatin 10 mg tablet [Concomitant]
  12. zinc sulfate 50 mg zinc (220 mg) capsule [Concomitant]

REACTIONS (1)
  - Death [None]
